FAERS Safety Report 5402367-4 (Version None)
Quarter: 2007Q3

REPORT INFORMATION
  Report Type: 
  Country: None (occurrence: None)
  Receive Date: 20070801
  Receipt Date: 20070726
  Transmission Date: 20080115
  Serious: Yes (Other)
  Sender: FDA-Public Use
  Company Number: US-ELI_LILLY_AND_COMPANY-US200707006310

PATIENT
  Age: 64 Year
  Sex: Female

DRUGS (2)
  1. XIGRIS [Suspect]
     Indication: UROSEPSIS
  2. OXYGEN [Concomitant]

REACTIONS (2)
  - BLOOD CREATININE INCREASED [None]
  - PLATELET COUNT DECREASED [None]
